FAERS Safety Report 7595635-1 (Version None)
Quarter: 2011Q3

REPORT INFORMATION
  Report Type: 
  Country: None (occurrence: None)
  Receive Date: 20110707
  Receipt Date: 20110625
  Transmission Date: 20111222
  Serious: Yes (Other)
  Sender: FDA-Public Use
  Company Number: PHHY2011IN59056

PATIENT
  Age: 55 Year
  Sex: Male

DRUGS (2)
  1. CLOZAPINE [Suspect]
     Dosage: 75 MG, DAILY
  2. CLOZAPINE [Suspect]
     Dosage: 300 MG, DAILY

REACTIONS (6)
  - SALIVARY HYPERSECRETION [None]
  - ROAD TRAFFIC ACCIDENT [None]
  - HEAD INJURY [None]
  - SPEECH DISORDER [None]
  - CONSTIPATION [None]
  - TACHYCARDIA [None]
